FAERS Safety Report 13077088 (Version 2)
Quarter: 2016Q4

REPORT INFORMATION
  Report Type: Spontaneous
  Country: US (occurrence: US)
  Receive Date: 20161230
  Receipt Date: 20161230
  Transmission Date: 20170207
  Serious: Yes (Life-Threatening, Hospitalization, Other)
  Sender: FDA-Public Use
  Company Number: US-BRISTOL-MYERS SQUIBB COMPANY-BMS-2016-110472

PATIENT
  Sex: Male

DRUGS (2)
  1. OPDIVO [Suspect]
     Active Substance: NIVOLUMAB
     Indication: MALIGNANT MELANOMA
     Dosage: UNK
     Route: 065
  2. YERVOY [Suspect]
     Active Substance: IPILIMUMAB
     Indication: MALIGNANT MELANOMA
     Dosage: UNK
     Route: 065

REACTIONS (9)
  - Immune-mediated adverse reaction [Unknown]
  - Gastrointestinal inflammation [Unknown]
  - Blood potassium increased [Unknown]
  - Diabetes mellitus [Unknown]
  - Loss of consciousness [Unknown]
  - Renal impairment [Unknown]
  - Hypotension [Unknown]
  - Pancreatic disorder [Unknown]
  - Pyrexia [Unknown]
